FAERS Safety Report 23461986 (Version 2)
Quarter: 2024Q1

REPORT INFORMATION
  Report Type: Spontaneous
  Country: JP (occurrence: JP)
  Receive Date: 20240131
  Receipt Date: 20240220
  Transmission Date: 20240410
  Serious: Yes (Other)
  Sender: FDA-Public Use
  Company Number: JP-JOURNEY MEDICAL CORPORATION-2024JNY00017

PATIENT
  Age: 3 Decade
  Sex: Female

DRUGS (1)
  1. QBREXZA [Suspect]
     Active Substance: GLYCOPYRRONIUM TOSYLATE
     Indication: Hyperhidrosis
     Dosage: 1 DOSAGE FORM, 1X/DAY
     Route: 061

REACTIONS (2)
  - Glaucoma [Unknown]
  - Photophobia [Recovered/Resolved]
